FAERS Safety Report 18116848 (Version 2)
Quarter: 2022Q3

REPORT INFORMATION
  Report Type: Spontaneous
  Country: CA (occurrence: CA)
  Receive Date: 20200805
  Receipt Date: 20220919
  Transmission Date: 20221027
  Serious: Yes (Other)
  Sender: FDA-Public Use
  Company Number: CA-ANIPHARMA-2020-CA-001467

PATIENT
  Age: 82 Year
  Sex: Male

DRUGS (5)
  1. CANDESARTAN [Suspect]
     Active Substance: CANDESARTAN
     Indication: Product used for unknown indication
     Dosage: 4 MG UNK / 8 MG QD
     Route: 048
  2. FUROSEMIDE [Suspect]
     Active Substance: FUROSEMIDE
     Dosage: 40 MG QD / 40 MG BID
     Route: 048
  3. ASPIRIN [Concomitant]
     Active Substance: ASPIRIN
     Dosage: 81 MG QD
     Route: 065
  4. ATORVASTATIN [Concomitant]
     Active Substance: ATORVASTATIN
     Dosage: 40 MG QD
     Route: 065
  5. BISOPROLOL [Concomitant]
     Active Substance: BISOPROLOL
     Dosage: 2.5 MG QD
     Route: 065

REACTIONS (3)
  - Blood creatinine increased [Recovering/Resolving]
  - Glomerular filtration rate decreased [Recovering/Resolving]
  - Hyperkalaemia [Recovered/Resolved]
